FAERS Safety Report 21988444 (Version 6)
Quarter: 2023Q4

REPORT INFORMATION
  Report Type: Report from Study
  Country: GB (occurrence: GB)
  Receive Date: 20230214
  Receipt Date: 20231007
  Transmission Date: 20240109
  Serious: Yes (Hospitalization, Other)
  Sender: FDA-Public Use
  Company Number: GB-002147023-NVSC2023GB028163

PATIENT
  Sex: Male

DRUGS (4)
  1. KESIMPTA [Suspect]
     Active Substance: OFATUMUMAB
     Indication: Multiple sclerosis
     Dosage: 20 MG, OTHER ( WEEK 0, WEEK 1, WEEK 2, WEEK 4 THEN MONTHLY)
     Route: 058
     Dates: start: 20230201
  2. KESIMPTA [Suspect]
     Active Substance: OFATUMUMAB
     Dosage: 20 MG, QMO
     Route: 058
  3. KESIMPTA [Suspect]
     Active Substance: OFATUMUMAB
     Dosage: UNK
     Route: 058
     Dates: start: 20230301
  4. CIPROFLOXACIN [Suspect]
     Active Substance: CIPROFLOXACIN
     Indication: Lower respiratory tract infection
     Dosage: UNK
     Route: 065
     Dates: start: 20230501

REACTIONS (17)
  - Dyspnoea [Recovering/Resolving]
  - Syncope [Unknown]
  - Malaise [Not Recovered/Not Resolved]
  - Hyperhidrosis [Not Recovered/Not Resolved]
  - Poor quality sleep [Unknown]
  - Peripheral swelling [Unknown]
  - Hypoaesthesia [Recovering/Resolving]
  - Peripheral coldness [Recovered/Resolved]
  - Gait disturbance [Recovering/Resolving]
  - Mobility decreased [Not Recovered/Not Resolved]
  - Movement disorder [Unknown]
  - Fall [Unknown]
  - Rib fracture [Unknown]
  - Balance disorder [Unknown]
  - Lower respiratory tract infection [Not Recovered/Not Resolved]
  - Sciatica [Not Recovered/Not Resolved]
  - Intervertebral disc protrusion [Unknown]

NARRATIVE: CASE EVENT DATE: 20230201
